FAERS Safety Report 9793098 (Version 1)
Quarter: 2013Q4

REPORT INFORMATION
  Report Type: Spontaneous
  Country: US (occurrence: None)
  Receive Date: 20131231
  Receipt Date: 20131231
  Transmission Date: 20140711
  Serious: Yes (Hospitalization)
  Sender: FDA-Public Use
  Company Number: None

PATIENT
  Age: 64 Year
  Sex: Male
  Weight: 167.3 kg

DRUGS (3)
  1. WARFARIN [Suspect]
     Indication: DEEP VEIN THROMBOSIS
     Route: 048
     Dates: start: 20131113
  2. WARFARIN [Suspect]
     Indication: PULMONARY EMBOLISM
     Route: 048
     Dates: start: 20131113
  3. ENOXAPARIN [Suspect]
     Dates: start: 20131212

REACTIONS (5)
  - Gastric haemorrhage [None]
  - Polyp [None]
  - Rectal haemorrhage [None]
  - Lipoma [None]
  - Haemorrhoids [None]
